FAERS Safety Report 20190849 (Version 5)
Quarter: 2022Q2

REPORT INFORMATION
  Report Type: Spontaneous
  Country: JP (occurrence: JP)
  Receive Date: 20211216
  Receipt Date: 20220428
  Transmission Date: 20220720
  Serious: Yes (Hospitalization, Other)
  Sender: FDA-Public Use
  Company Number: JP-TAKEDA-2021TJP128316

PATIENT
  Age: 76 Year
  Sex: Male
  Weight: 48 kg

DRUGS (12)
  1. NINLARO [Suspect]
     Active Substance: IXAZOMIB CITRATE
     Indication: Plasma cell myeloma
     Dosage: 3 MILLIGRAM, 1/WEEK
     Route: 048
     Dates: start: 20211110
  2. REVLIMID [Suspect]
     Active Substance: LENALIDOMIDE
     Indication: Plasma cell myeloma
     Dosage: UNK
     Route: 065
     Dates: start: 20211110
  3. FEBUXOSTAT [Concomitant]
     Active Substance: FEBUXOSTAT
     Dosage: UNK
     Route: 048
     Dates: start: 20201002
  4. LANSOPRAZOLE [Concomitant]
     Active Substance: LANSOPRAZOLE
     Dosage: UNK
     Route: 048
     Dates: start: 20201002
  5. ACYCLOVIR [Concomitant]
     Active Substance: ACYCLOVIR
     Dosage: UNK
     Route: 048
     Dates: start: 20201002
  6. SULFAMETHOXAZOLE\TRIMETHOPRIM [Concomitant]
     Active Substance: SULFAMETHOXAZOLE\TRIMETHOPRIM
     Dosage: UNK
     Route: 048
     Dates: start: 20201002
  7. SENNOSIDES A AND B [Concomitant]
     Active Substance: SENNOSIDES A AND B
     Dosage: UNK
     Route: 048
     Dates: start: 20201002
  8. ELOBIXIBAT [Concomitant]
     Active Substance: ELOBIXIBAT
     Dosage: UNK
     Route: 048
     Dates: start: 20211110
  9. ASPIRIN [Concomitant]
     Active Substance: ASPIRIN
     Indication: Angina pectoris
     Dosage: 100 MILLIGRAM
     Route: 048
  10. AMLODIPINE [Concomitant]
     Active Substance: AMLODIPINE BESYLATE
     Indication: Hypertension
     Dosage: 2.5 MILLIGRAM
     Route: 048
  11. CARVEDILOL [Concomitant]
     Active Substance: CARVEDILOL
     Indication: Hypertension
     Dosage: 2.5 MILLIGRAM
     Route: 048
  12. CARVEDILOL [Concomitant]
     Active Substance: CARVEDILOL
     Indication: Angina pectoris

REACTIONS (3)
  - Adrenal insufficiency [Recovering/Resolving]
  - Gastric ulcer [Recovered/Resolved]
  - Duodenal ulcer [Recovered/Resolved]

NARRATIVE: CASE EVENT DATE: 20211110
